FAERS Safety Report 5916954-8 (Version None)
Quarter: 2008Q4

REPORT INFORMATION
  Report Type: 
  Country: None (occurrence: None)
  Receive Date: 20081013
  Receipt Date: 20081007
  Transmission Date: 20090506
  Serious: Yes (Hospitalization, Other)
  Sender: FDA-Public Use
  Company Number: JP-ABBOTT-08P-087-0473023-00

PATIENT
  Sex: Female

DRUGS (20)
  1. KLARICID TABLETS [Suspect]
     Indication: HELICOBACTER INFECTION
     Route: 048
     Dates: start: 20070831, end: 20070906
  2. CIPRALAN [Interacting]
     Indication: ATRIAL FIBRILLATION
     Route: 048
     Dates: start: 20070801, end: 20070908
  3. AMOXICILLIN [Suspect]
     Indication: HELICOBACTER INFECTION
     Route: 048
     Dates: start: 20070831, end: 20070906
  4. OMEPRAZOLE [Concomitant]
     Indication: HELICOBACTER INFECTION
     Route: 048
     Dates: start: 20070831, end: 20070906
  5. OMEPRAZOLE [Concomitant]
  6. STREPTOCOCCUS FAECALIS [Concomitant]
     Indication: HELICOBACTER INFECTION
     Route: 048
     Dates: start: 20070831, end: 20070906
  7. STREPTOCOCCUS FAECALIS [Concomitant]
  8. SUCRALFATE [Concomitant]
     Indication: GASTRIC ULCER
     Route: 048
     Dates: start: 20070726, end: 20070906
  9. SODIUM ALGINATE [Concomitant]
     Indication: GASTRIC ULCER
     Route: 048
     Dates: start: 20070726, end: 20070906
  10. MAALOX [Concomitant]
     Indication: GASTRIC ULCER
     Route: 048
     Dates: start: 20070726, end: 20070906
  11. QUETIAPINE FUMARATE [Concomitant]
     Indication: ANXIETY DISORDER
     Route: 048
     Dates: start: 20070801
  12. DONEPEZIL HCL [Concomitant]
     Indication: DEMENTIA
     Route: 048
     Dates: start: 20070801
  13. TORSEMIDE [Concomitant]
     Indication: CARDIAC FAILURE CHRONIC
     Route: 048
     Dates: start: 20070801
  14. SPIRONOLACTONE [Concomitant]
     Indication: CARDIAC FAILURE CHRONIC
     Route: 048
     Dates: start: 20070801
  15. SINEMET [Concomitant]
     Indication: PARKINSON'S DISEASE
     Route: 048
     Dates: start: 20070904, end: 20070910
  16. METILDIGOXIN [Concomitant]
     Indication: ATRIAL FIBRILLATION
     Route: 048
  17. WARFARIN SODIUM [Concomitant]
     Indication: ATRIAL FIBRILLATION
     Dosage: 3-4 MILLIGRAMS ONCE DAILY
     Route: 048
     Dates: start: 20070731, end: 20070809
  18. WARFARIN SODIUM [Concomitant]
     Dosage: 3-4 MILLIGRAMS ONCE DAILY
     Route: 048
     Dates: start: 20070920, end: 20071028
  19. PILSICAINIDE HYDROCHLORIDE [Concomitant]
     Indication: ATRIAL FIBRILLATION
     Dosage: 50 MG
     Route: 042
     Dates: start: 20070907
  20. DESLANOSIDE [Concomitant]
     Indication: ATRIAL FIBRILLATION
     Route: 042
     Dates: start: 20070907, end: 20070921

REACTIONS (11)
  - ACTIVITIES OF DAILY LIVING IMPAIRED [None]
  - ANOREXIA [None]
  - ATRIAL FIBRILLATION [None]
  - DRUG INTERACTION [None]
  - DRUG LEVEL INCREASED [None]
  - DYSPNOEA [None]
  - HEART RATE INCREASED [None]
  - HYPOGLYCAEMIA [None]
  - HYPOGLYCAEMIC COMA [None]
  - LOSS OF CONSCIOUSNESS [None]
  - TREMOR [None]
